FAERS Safety Report 7331561-0 (Version None)
Quarter: 2011Q1

REPORT INFORMATION
  Report Type: 
  Country: None (occurrence: None)
  Receive Date: 20110228
  Receipt Date: 20110228
  Transmission Date: 20110831
  Serious: Yes (Hospitalization)
  Sender: FDA-Public Use
  Company Number: None

PATIENT
  Sex: Female
  Weight: 61.4 kg

DRUGS (1)
  1. CITALOPRAM HYDROBROMIDE [Suspect]
     Indication: STRESS
     Dosage: 20 MG TABLET CITALOPRAM HBR ONCE A DAY BY MOUTH
     Route: 048
     Dates: start: 20101214, end: 20101220

REACTIONS (9)
  - BALANCE DISORDER [None]
  - FATIGUE [None]
  - DECREASED APPETITE [None]
  - INSOMNIA [None]
  - BLOOD SODIUM DECREASED [None]
  - APHAGIA [None]
  - BLOOD POTASSIUM DECREASED [None]
  - VOMITING [None]
  - DEHYDRATION [None]
